FAERS Safety Report 16457532 (Version 2)
Quarter: 2019Q3

REPORT INFORMATION
  Report Type: Spontaneous
  Country: PT (occurrence: PT)
  Receive Date: 20190620
  Receipt Date: 20190710
  Transmission Date: 20191004
  Serious: Yes (Hospitalization)
  Sender: FDA-Public Use
  Company Number: PT-MYLANLABS-2019M1056462

PATIENT
  Age: 66 Year
  Sex: Female

DRUGS (1)
  1. VENLAFAXINE [Suspect]
     Active Substance: VENLAFAXINE HYDROCHLORIDE
     Indication: DEPRESSION
     Dosage: UNK

REACTIONS (6)
  - Pulmonary oedema [Recovered/Resolved]
  - Pyelonephritis [Recovered/Resolved]
  - Renal impairment [Recovered/Resolved]
  - Tachyarrhythmia [Recovered/Resolved]
  - Hypertension [Recovered/Resolved]
  - Overdose [Recovered/Resolved]
